FAERS Safety Report 6367917-2 (Version None)
Quarter: 2009Q3

REPORT INFORMATION
  Report Type: 
  Country: None (occurrence: None)
  Receive Date: 20090922
  Receipt Date: 20090630
  Transmission Date: 20100115
  Serious: No
  Sender: FDA-Public Use
  Company Number: A0646104A

PATIENT
  Age: 72 Year
  Sex: Female

DRUGS (7)
  1. SEREVENT [Suspect]
     Indication: ASTHMA
     Dosage: 1PUFF TWICE PER DAY
     Route: 055
     Dates: start: 20070404
  2. ADVAIR HFA [Suspect]
     Indication: ASTHMA
     Dosage: 1PUFF TWICE PER DAY
     Route: 055
  3. XOPENEX [Concomitant]
  4. FLOVENT [Concomitant]
  5. ALBUTEROL [Concomitant]
  6. BLOOD PRESSURE MEDICATION [Concomitant]
  7. WATER PILL [Concomitant]

REACTIONS (6)
  - COUGH [None]
  - FEELING JITTERY [None]
  - INCORRECT DOSE ADMINISTERED [None]
  - NERVOUSNESS [None]
  - VISION BLURRED [None]
  - VISUAL IMPAIRMENT [None]
